FAERS Safety Report 24089193 (Version 1)
Quarter: 2024Q3

REPORT INFORMATION
  Report Type: Report from Study
  Country: BR (occurrence: None)
  Receive Date: 20240715
  Receipt Date: 20240715
  Transmission Date: 20241017
  Serious: Yes (Hospitalization, Disabling)
  Sender: ASTRAZENECA
  Company Number: 2021A367033

PATIENT
  Age: 19112 Day
  Sex: Female
  Weight: 50 kg

DRUGS (4)
  1. OLAPARIB [Suspect]
     Active Substance: OLAPARIB
     Indication: Breast cancer metastatic
     Route: 048
     Dates: start: 20200706, end: 20210215
  2. CLOPROMAZINA [Concomitant]
     Route: 048
     Dates: start: 20210215, end: 20210216
  3. FENTANYL [Concomitant]
     Active Substance: FENTANYL\FENTANYL CITRATE
     Dosage: 25.0MG CONTINUOUSLY
     Route: 061
     Dates: start: 20210211, end: 20210216
  4. METHADONE HYDROCHLORIDE [Concomitant]
     Active Substance: METHADONE HYDROCHLORIDE
     Route: 042
     Dates: start: 20210211, end: 20210216

REACTIONS (3)
  - Headache [Recovered/Resolved]
  - Neck pain [Recovered/Resolved]
  - Back pain [Recovered/Resolved]

NARRATIVE: CASE EVENT DATE: 20210131
